FAERS Safety Report 5744550-4 (Version None)
Quarter: 2008Q2

REPORT INFORMATION
  Report Type: 
  Country: None (occurrence: None)
  Receive Date: 20080516
  Receipt Date: 20080501
  Transmission Date: 20081010
  Serious: Yes (Hospitalization)
  Sender: FDA-Public Use
  Company Number: 2008S1005924

PATIENT
  Age: 60 Year
  Sex: Male

DRUGS (6)
  1. DIAZEPAM [Suspect]
     Indication: CERVICAL SPINAL STENOSIS
     Dosage: 10 MG; TWICE A DAY; ORAL
     Route: 048
     Dates: start: 20070201
  2. DIAZEPAM [Suspect]
     Indication: NECK PAIN
     Dosage: 10 MG; TWICE A DAY; ORAL
     Route: 048
     Dates: start: 20070201
  3. DIAZEPAM [Suspect]
     Indication: OSTEOCHONDROSIS
     Dosage: 10 MG; TWICE A DAY; ORAL
     Route: 048
     Dates: start: 20070201
  4. HYDROCODONE [Suspect]
     Indication: CERVICAL SPINAL STENOSIS
     Dosage: TWICE A DAY; ORAL
     Route: 048
     Dates: start: 20070420, end: 20080325
  5. ZETIA [Concomitant]
  6. AMBIEN [Concomitant]

REACTIONS (8)
  - DRUG INTERACTION [None]
  - DRY MOUTH [None]
  - FOAMING AT MOUTH [None]
  - GINGIVAL PAIN [None]
  - GINGIVAL PRURITUS [None]
  - HERNIA [None]
  - JAW DISORDER [None]
  - SENSORY DISTURBANCE [None]
